FAERS Safety Report 5832274-4 (Version None)
Quarter: 2008Q3

REPORT INFORMATION
  Report Type: 
  Country: None (occurrence: None)
  Receive Date: 20080730
  Receipt Date: 20080715
  Transmission Date: 20090109
  Serious: Yes (Hospitalization, Other)
  Sender: FDA-Public Use
  Company Number: 2008BI014359

PATIENT
  Age: 41 Year
  Sex: Female

DRUGS (10)
  1. TYSABRI [Suspect]
     Indication: MULTIPLE SCLEROSIS
     Dosage: 300 MG;QM;IV
     Route: 042
     Dates: start: 20071001
  2. ASPIRIN [Concomitant]
  3. CITALOPRAM HYDROBROMIDE [Concomitant]
  4. LOPRESSOR [Concomitant]
  5. LYRICA [Concomitant]
  6. OMEPRAZOLE [Concomitant]
  7. TINZANIDINE [Concomitant]
  8. ZESTRIL [Concomitant]
  9. ZOCOR [Concomitant]
  10. ZOLPIDEM [Concomitant]

REACTIONS (4)
  - CARDIAC FAILURE CONGESTIVE [None]
  - DIABETES MELLITUS [None]
  - MALAISE [None]
  - VOMITING [None]
